FAERS Safety Report 24412917 (Version 1)
Quarter: 2024Q4

REPORT INFORMATION
  Report Type: Spontaneous
  Country: US (occurrence: None)
  Receive Date: 20241008
  Receipt Date: 20241008
  Transmission Date: 20250115
  Serious: Yes (Other)
  Sender: Public
  Company Number: None

PATIENT
  Age: 9 Year
  Sex: Male

DRUGS (2)
  1. ATROPINE [Suspect]
     Active Substance: ATROPINE
     Indication: Myopia correction
     Dosage: OTHER QUANTITY : 1 DROP(S);?FREQUENCY : AT BEDTIME;?
     Route: 047
     Dates: start: 20240909, end: 20240910
  2. METHYLPHENIDATE [Concomitant]
     Active Substance: METHYLPHENIDATE

REACTIONS (3)
  - Eye pain [None]
  - Mydriasis [None]
  - Photosensitivity reaction [None]

NARRATIVE: CASE EVENT DATE: 20240909
